FAERS Safety Report 8505848-X (Version None)
Quarter: 2012Q3

REPORT INFORMATION
  Report Type: 
  Country: None (occurrence: None)
  Receive Date: 20120712
  Receipt Date: 20120703
  Transmission Date: 20120928
  Serious: Yes (Other)
  Sender: FDA-Public Use
  Company Number: CA-JNJFOC-20120701222

PATIENT
  Sex: Female
  Weight: 79 kg

DRUGS (5)
  1. RISEDRONATE SODIUM [Concomitant]
     Route: 065
  2. PLAQUENIL [Concomitant]
     Route: 065
  3. SYNTHROID [Concomitant]
     Route: 065
  4. REMICADE [Suspect]
     Indication: RHEUMATOID ARTHRITIS
     Route: 042
     Dates: start: 20081201
  5. NITROGLYCERIN [Concomitant]
     Route: 065

REACTIONS (1)
  - CHEST PAIN [None]
